FAERS Safety Report 5926422-5 (Version None)
Quarter: 2008Q4

REPORT INFORMATION
  Report Type: 
  Country: None (occurrence: None)
  Receive Date: 20081022
  Receipt Date: 20081017
  Transmission Date: 20090506
  Serious: Yes (Other)
  Sender: FDA-Public Use
  Company Number: JP-ASTRAZENECA-2008AP08044

PATIENT
  Age: 32 Year
  Sex: Male
  Weight: 74 kg

DRUGS (2)
  1. PROPOFOL [Suspect]
     Indication: INDUCTION AND MAINTENANCE OF ANAESTHESIA
     Dosage: DOSE UNKNOWN
     Route: 042
  2. REMIFENTANIL HYDROCHLORIDE [Suspect]
     Indication: INDUCTION AND MAINTENANCE OF ANAESTHESIA
     Dosage: DOSE UNKNOWN
     Route: 042

REACTIONS (2)
  - BLOOD PRESSURE INCREASED [None]
  - GRAND MAL CONVULSION [None]
